FAERS Safety Report 15011750 (Version 1)
Quarter: 2018Q2

REPORT INFORMATION
  Report Type: Spontaneous
  Country: US (occurrence: US)
  Receive Date: 20180614
  Receipt Date: 20180614
  Transmission Date: 20180711
  Serious: No
  Sender: FDA-Public Use
  Company Number: US-DUCHESNAY INC.-2049426

PATIENT
  Age: 75 Year
  Sex: Female

DRUGS (1)
  1. OSPHENA [Suspect]
     Active Substance: OSPEMIFENE
     Indication: DYSPAREUNIA
     Route: 048
     Dates: start: 20180128, end: 20180306

REACTIONS (2)
  - Headache [Recovered/Resolved]
  - Hot flush [Recovered/Resolved]

NARRATIVE: CASE EVENT DATE: 20180128
